FAERS Safety Report 4946197-6 (Version None)
Quarter: 2006Q1

REPORT INFORMATION
  Report Type: 
  Country: None (occurrence: None)
  Receive Date: 20060118
  Receipt Date: 20050513
  Transmission Date: 20060701
  Serious: Yes (Hospitalization)
  Sender: FDA-Public Use
  Company Number: US-JNJFOC-20050404306

PATIENT
  Age: 61 Year
  Sex: Female
  Weight: 93.441 kg

DRUGS (1)
  1. DOXIL [Suspect]
     Indication: OVARIAN CANCER
     Dosage: 57 MG, INTRAVENOUS
     Route: 042
     Dates: start: 20050401, end: 20050401

REACTIONS (2)
  - GASTROINTESTINAL HAEMORRHAGE [None]
  - STOMATITIS [None]
